FAERS Safety Report 4633328-0 (Version None)
Quarter: 2005Q2

REPORT INFORMATION
  Report Type: 
  Country: None (occurrence: None)
  Receive Date: 20050408
  Receipt Date: 20050324
  Transmission Date: 20051028
  Serious: Yes (Congenital Anomaly)
  Sender: FDA-Public Use
  Company Number: 2005-0008201

PATIENT
  Sex: Male
  Weight: 3.1 kg

DRUGS (3)
  1. VIREAD [Suspect]
     Dosage: TRANSPLACENTAL
     Route: 064
  2. DIDANOSINE [Concomitant]
  3. KALETRA [Concomitant]

REACTIONS (2)
  - DRUG EXPOSURE DURING PREGNANCY [None]
  - TRISOMY 8 [None]
